FAERS Safety Report 7486697-0 (Version None)
Quarter: 2011Q2

REPORT INFORMATION
  Report Type: 
  Country: None (occurrence: None)
  Receive Date: 20110517
  Receipt Date: 20100525
  Transmission Date: 20111010
  Serious: No
  Sender: FDA-Public Use
  Company Number: US-NOVEN-ALL1-2010-03054

PATIENT

DRUGS (4)
  1. COZAAR [Concomitant]
     Dosage: 50 MG, 1X/DAY:QD
     Route: 048
     Dates: start: 20090101
  2. DAYTRANA [Suspect]
     Dosage: 20 MG, 1X/DAY:QD
     Route: 062
     Dates: start: 20100501
  3. DAYTRANA [Suspect]
  4. LAMICTAL [Concomitant]
     Dosage: 200 MG, 1X/DAY:QD
     Route: 048

REACTIONS (4)
  - OFF LABEL USE [None]
  - CONDITION AGGRAVATED [None]
  - PHOTOSENSITIVITY REACTION [None]
  - TIC [None]
